FAERS Safety Report 6312136-9 (Version None)
Quarter: 2009Q3

REPORT INFORMATION
  Report Type: 
  Country: None (occurrence: None)
  Receive Date: 20090813
  Receipt Date: 20090813
  Transmission Date: 20100115
  Serious: Yes (Other)
  Sender: FDA-Public Use
  Company Number: None

PATIENT
  Age: 39 Year
  Sex: Female
  Weight: 83.0083 kg

DRUGS (2)
  1. TRAMADOL HCL [Suspect]
     Indication: FIBROMYALGIA
     Dosage: 1 4 TIMES A DAY PO
     Route: 048
     Dates: start: 20090809, end: 20090812
  2. TRAMADOL HCL [Suspect]
     Indication: NEURALGIA
     Dosage: 1 4 TIMES A DAY PO
     Route: 048
     Dates: start: 20090809, end: 20090812

REACTIONS (3)
  - ANAPHYLACTIC SHOCK [None]
  - FREQUENT BOWEL MOVEMENTS [None]
  - NAUSEA [None]
